FAERS Safety Report 5239327-2 (Version None)
Quarter: 2007Q1

REPORT INFORMATION
  Report Type: 
  Country: None (occurrence: None)
  Receive Date: 20070213
  Receipt Date: 20070213
  Transmission Date: 20070707
  Serious: Yes (Hospitalization, Disabling, Other)
  Sender: FDA-Public Use
  Company Number: None

PATIENT
  Age: 2 Year
  Sex: Male
  Weight: 17.2367 kg

DRUGS (1)
  1. ^TOTAL MOISTURE^ LOTION  VASELINE [Suspect]
     Dosage: 2 DROPS  ONCE OTHER  1 APPLICATION
     Route: 050
     Dates: start: 20070201, end: 20070201

REACTIONS (3)
  - ERYTHEMA [None]
  - RESPIRATORY DISORDER [None]
  - WHEEZING [None]
